FAERS Safety Report 18468675 (Version 1)
Quarter: 2020Q4

REPORT INFORMATION
  Report Type: Spontaneous
  Country: US (occurrence: US)
  Receive Date: 20201105
  Receipt Date: 20201105
  Transmission Date: 20210114
  Serious: Yes (Other)
  Sender: FDA-Public Use
  Company Number: NVSC2020US292998

PATIENT
  Sex: Male

DRUGS (2)
  1. MEKINIST [Suspect]
     Active Substance: TRAMETINIB DIMETHYL SULFOXIDE
     Indication: NEUROENDOCRINE TUMOUR
     Dosage: 1 DF, QD
     Route: 048
     Dates: start: 20200701
  2. TAFINLAR [Suspect]
     Active Substance: DABRAFENIB MESYLATE
     Indication: NEUROENDOCRINE TUMOUR
     Dosage: 2 DF, Q12H
     Route: 048
     Dates: start: 20200701

REACTIONS (4)
  - Product use in unapproved indication [Unknown]
  - Haemorrhage [Unknown]
  - Visual impairment [Unknown]
  - Contusion [Unknown]
